FAERS Safety Report 20125838 (Version 1)
Quarter: 2021Q4

REPORT INFORMATION
  Report Type: Spontaneous
  Country: HR (occurrence: HR)
  Receive Date: 20211129
  Receipt Date: 20211129
  Transmission Date: 20220303
  Serious: Yes (Other)
  Sender: FDA-Public Use
  Company Number: None

PATIENT
  Age: 33 Year
  Sex: Female

DRUGS (4)
  1. LYRICA [Suspect]
     Active Substance: PREGABALIN
     Dosage: 10-15 ^TABLET^ OF 75 MG
     Route: 048
     Dates: start: 20210621, end: 20210621
  2. SEROQUEL [Suspect]
     Active Substance: QUETIAPINE FUMARATE
     Dosage: 5 TABLET
     Route: 048
     Dates: start: 20210621, end: 20210621
  3. DIAZEPAM [Suspect]
     Active Substance: DIAZEPAM
     Dosage: 40 MG, 1X/DAY
     Route: 048
     Dates: start: 20210621, end: 20210621
  4. OLANZAPINE [Suspect]
     Active Substance: OLANZAPINE
     Dosage: 5 TABLET
     Route: 048
     Dates: start: 20210621, end: 20210621

REACTIONS (3)
  - Intentional overdose [Unknown]
  - Suicide attempt [Unknown]
  - Somnolence [Unknown]

NARRATIVE: CASE EVENT DATE: 20210621
